FAERS Safety Report 9032366 (Version 1)
Quarter: 2013Q1

REPORT INFORMATION
  Report Type: Spontaneous
  Country: SE (occurrence: SE)
  Receive Date: 20130125
  Receipt Date: 20130125
  Transmission Date: 20140127
  Serious: Yes (Other)
  Sender: FDA-Public Use
  Company Number: SE-US-EMD SERONO, INC.-7171613

PATIENT
  Age: 35 Year
  Sex: Female

DRUGS (4)
  1. OVITRELLE [Suspect]
     Indication: IN VITRO FERTILISATION
     Route: 058
     Dates: start: 20121022, end: 20121022
  2. SYNARELA [Concomitant]
     Indication: PROPHYLAXIS
  3. FSH [Concomitant]
     Indication: IN VITRO FERTILISATION
  4. FSH [Concomitant]

REACTIONS (1)
  - Drug ineffective [Recovered/Resolved]
